FAERS Safety Report 4637422-X (Version None)
Quarter: 2005Q2

REPORT INFORMATION
  Report Type: 
  Country: None (occurrence: None)
  Receive Date: 20050418
  Receipt Date: 20050407
  Transmission Date: 20051028
  Serious: Yes (Other)
  Sender: FDA-Public Use
  Company Number: PHHO2005IT05655

PATIENT
  Age: 65 Year
  Sex: Female

DRUGS (2)
  1. ZOLEDRONIC ACID [Suspect]
     Indication: PROPHYLAXIS
     Dosage: 4 MG, QMO
     Route: 042
     Dates: start: 20021116
  2. PEGINTERFERON ALFA-2A [Suspect]
     Indication: MULTIPLE MYELOMA
     Dosage: 35 UG, QW
     Dates: start: 20020920, end: 20050325

REACTIONS (2)
  - AUTOIMMUNE DISORDER [None]
  - PRIMARY HYPOTHYROIDISM [None]
